FAERS Safety Report 23635092 (Version 1)
Quarter: 2024Q1

REPORT INFORMATION
  Report Type: Spontaneous
  Country: US (occurrence: US)
  Receive Date: 20240315
  Receipt Date: 20240315
  Transmission Date: 20240410
  Serious: No
  Sender: FDA-Public Use
  Company Number: US-APOTEX-2024AP003308

PATIENT
  Age: 13 Year
  Sex: Male

DRUGS (2)
  1. ATROPINE [Suspect]
     Active Substance: ATROPINE\ATROPINE SULFATE
     Indication: Myopia
     Dosage: UNK, Q.H.S.
     Route: 047
  2. ATROPINE [Suspect]
     Active Substance: ATROPINE\ATROPINE SULFATE
     Dosage: UNK, Q.H.S.
     Route: 047

REACTIONS (3)
  - Systolic hypertension [Recovered/Resolved]
  - Mydriasis [Not Recovered/Not Resolved]
  - Photophobia [Recovered/Resolved]
